FAERS Safety Report 9106918 (Version 3)
Quarter: 2013Q1

REPORT INFORMATION
  Report Type: Report from Study
  Country: NL (occurrence: NL)
  Receive Date: 20130221
  Receipt Date: 20130320
  Transmission Date: 20140127
  Serious: Yes (Death, Hospitalization, Other)
  Sender: FDA-Public Use
  Company Number: NL-GENZYME-CLOF-1002451

PATIENT
  Age: 28 Year
  Sex: Male
  Weight: 92 kg

DRUGS (9)
  1. EVOLTRA [Suspect]
     Indication: ACUTE LYMPHOCYTIC LEUKAEMIA RECURRENT
     Dosage: UNK
     Route: 065
     Dates: start: 20120703, end: 20120707
  2. EVOLTRA [Suspect]
     Dosage: 66 MG, UNK
     Route: 042
     Dates: start: 20121018, end: 20121022
  3. CYTARABINE [Suspect]
     Indication: ACUTE LYMPHOCYTIC LEUKAEMIA RECURRENT
     Dosage: 68 MG, UNK
     Route: 058
     Dates: start: 20121213, end: 20121221
  4. ETOPOSIDE [Suspect]
     Indication: ACUTE LYMPHOCYTIC LEUKAEMIA RECURRENT
     Dosage: 343 MG, UNK
     Route: 042
     Dates: start: 20121213, end: 20121220
  5. METHOTREXATE [Suspect]
     Indication: ACUTE LYMPHOCYTIC LEUKAEMIA RECURRENT
     Dosage: 15 MG, UNK
     Route: 037
     Dates: start: 20121213, end: 20121213
  6. THIOGUANINE [Suspect]
     Indication: ACUTE LYMPHOCYTIC LEUKAEMIA RECURRENT
     Dosage: 137 MG, UNK
     Route: 048
     Dates: start: 20121213, end: 20121221
  7. PREDNISOLONE [Suspect]
     Indication: ACUTE LYMPHOCYTIC LEUKAEMIA RECURRENT
     Dosage: 25 MG, QD
     Route: 037
     Dates: start: 20121213, end: 20121213
  8. VALACICLOVIR [Concomitant]
     Indication: PROPHYLAXIS
     Dosage: 500 MG, BID
     Route: 048
     Dates: start: 2012, end: 20121221
  9. FRAXIPARINE [Concomitant]
     Indication: PULMONARY EMBOLISM
     Dosage: 11400 UNK, UNK
     Route: 058
     Dates: start: 20121122, end: 20121125

REACTIONS (6)
  - Sepsis [Fatal]
  - Intervertebral discitis [Fatal]
  - Respiratory failure [Unknown]
  - Febrile neutropenia [Unknown]
  - Neutropenia [Unknown]
  - Candida infection [Unknown]
